FAERS Safety Report 23172054 (Version 1)
Quarter: 2023Q4

REPORT INFORMATION
  Report Type: Spontaneous
  Country: US (occurrence: None)
  Receive Date: 20231108
  Receipt Date: 20231108
  Transmission Date: 20240109
  Serious: Yes (unspecified)
  Sender: FDA-Public Use
  Company Number: None

PATIENT
  Age: 54 Year
  Sex: Male
  Weight: 83.91 kg

DRUGS (1)
  1. YUFLYMA [Suspect]
     Active Substance: ADALIMUMAB-AATY
     Indication: Crohn^s disease
     Dosage: 40MG Q2WEEK SQ
     Route: 058
     Dates: start: 20231026

REACTIONS (4)
  - Abdominal pain [None]
  - Diarrhoea [None]
  - Weight decreased [None]
  - Crohn^s disease [None]

NARRATIVE: CASE EVENT DATE: 20231026
